FAERS Safety Report 9792704 (Version 1)
Quarter: 2014Q1

REPORT INFORMATION
  Report Type: Spontaneous
  Country: US (occurrence: US)
  Receive Date: 20140102
  Receipt Date: 20140102
  Transmission Date: 20141002
  Serious: No
  Sender: FDA-Public Use
  Company Number: US-SA-2013SA104989

PATIENT
  Age: 59 Year
  Sex: Female

DRUGS (7)
  1. AUBAGIO [Suspect]
     Indication: MULTIPLE SCLEROSIS
     Route: 048
     Dates: start: 201304
  2. CELEXA [Concomitant]
  3. LEVOTHYROXINE [Concomitant]
  4. JANUMET [Concomitant]
  5. STARLIX [Concomitant]
  6. ACTOS [Concomitant]
  7. CADUET [Concomitant]

REACTIONS (2)
  - Fatigue [Unknown]
  - Diarrhoea [Unknown]
